FAERS Safety Report 14097478 (Version 1)
Quarter: 2017Q4

REPORT INFORMATION
  Report Type: Spontaneous
  Country: US (occurrence: None)
  Receive Date: 20171017
  Receipt Date: 20171017
  Transmission Date: 20180321
  Serious: Yes (Hospitalization)
  Sender: FDA-Public Use
  Company Number: None

PATIENT
  Age: 61 Year
  Sex: Male
  Weight: 83.46 kg

DRUGS (2)
  1. CLOZAPINE. [Suspect]
     Active Substance: CLOZAPINE
     Indication: SCHIZOPHRENIA
     Dosage: FREQUENCY - TWICE DAILY QAM
     Route: 048
  2. CLOZAPINE. [Suspect]
     Active Substance: CLOZAPINE
     Route: 048

REACTIONS (6)
  - Infrequent bowel movements [None]
  - Abdominal distension [None]
  - Intestinal dilatation [None]
  - Computerised tomogram abdomen abnormal [None]
  - Abdominal tenderness [None]
  - Drug ineffective [None]

NARRATIVE: CASE EVENT DATE: 20171014
